FAERS Safety Report 6689056-3 (Version None)
Quarter: 2010Q2

REPORT INFORMATION
  Report Type: 
  Country: None (occurrence: None)
  Receive Date: 20100420
  Receipt Date: 20100415
  Transmission Date: 20101027
  Serious: Yes (Hospitalization)
  Sender: FDA-Public Use
  Company Number: FR-WYE-G05962610

PATIENT
  Age: 76 Year
  Sex: Female

DRUGS (5)
  1. TAZOCILLINE [Suspect]
     Dosage: UNKNOWN
     Route: 042
     Dates: start: 20100209, end: 20100211
  2. TAVANIC [Suspect]
     Dosage: UNKNOWN
     Route: 042
     Dates: start: 20100209, end: 20100209
  3. AMIKIN [Suspect]
     Dosage: UNKNOWN
     Route: 042
     Dates: start: 20100209, end: 20100209
  4. NEXIUM [Suspect]
     Dosage: UNKNOWN
     Route: 042
     Dates: start: 20100209, end: 20100212
  5. HEPARIN [Suspect]
     Dosage: UNKNOWN
     Route: 042
     Dates: start: 20100209, end: 20100210

REACTIONS (2)
  - PLATELET AGGREGATION [None]
  - THROMBOCYTOPENIA [None]
